FAERS Safety Report 14343221 (Version 1)
Quarter: 2017Q4

REPORT INFORMATION
  Report Type: Spontaneous
  Country: US (occurrence: US)
  Receive Date: 20171229
  Receipt Date: 20171229
  Transmission Date: 20180321
  Serious: Yes (Hospitalization)
  Sender: FDA-Public Use
  Company Number: None

PATIENT
  Age: 71 Year
  Sex: Female
  Weight: 80 kg

DRUGS (2)
  1. ANBESOL REGULAR STRENGTH GEL [Suspect]
     Active Substance: BENZOCAINE
     Indication: ORAL HERPES
     Route: 061
     Dates: start: 20171225, end: 20171226
  2. HURRICAINE TOPICAL ANESTHETIC SPRAY [Suspect]
     Active Substance: BENZOCAINE
     Indication: ORAL HERPES
     Route: 061
     Dates: start: 20171226, end: 20171226

REACTIONS (2)
  - Dyspnoea [None]
  - Oxygen saturation decreased [None]

NARRATIVE: CASE EVENT DATE: 20171226
